FAERS Safety Report 6349058-3 (Version None)
Quarter: 2009Q3

REPORT INFORMATION
  Report Type: 
  Country: None (occurrence: None)
  Receive Date: 20090911
  Receipt Date: 20090907
  Transmission Date: 20100115
  Serious: Yes (Hospitalization)
  Sender: FDA-Public Use
  Company Number: HK-SP-2009-03847

PATIENT
  Age: 2 Week
  Sex: Male

DRUGS (1)
  1. IMMUCYST [Suspect]
     Indication: IMMUNISATION
     Dosage: NOT REPORTED
     Route: 023
     Dates: start: 20090904

REACTIONS (2)
  - JAUNDICE [None]
  - WRONG DRUG ADMINISTERED [None]
